FAERS Safety Report 9317842 (Version 1)
Quarter: 2013Q2

REPORT INFORMATION
  Report Type: Spontaneous
  Country: US (occurrence: US)
  Receive Date: 20130530
  Receipt Date: 20130530
  Transmission Date: 20140414
  Serious: No
  Sender: FDA-Public Use
  Company Number: US-GLAXOSMITHKLINE-A0987430A

PATIENT
  Age: 57 Year
  Sex: Female

DRUGS (4)
  1. VENTOLIN [Suspect]
     Indication: ASTHMA
     Dosage: 1PUFF AS REQUIRED
     Route: 055
     Dates: start: 20120601
  2. VITAMINS [Concomitant]
  3. PRIMATENE [Concomitant]
     Route: 048
  4. PREDNISONE [Concomitant]

REACTIONS (3)
  - Drug ineffective [Recovering/Resolving]
  - Dyspnoea [Unknown]
  - Product quality issue [Unknown]
